FAERS Safety Report 17300868 (Version 1)
Quarter: 2020Q1

REPORT INFORMATION
  Report Type: Spontaneous
  Country: GB (occurrence: GB)
  Receive Date: 20200122
  Receipt Date: 20200122
  Transmission Date: 20200409
  Serious: Yes (Life-Threatening, Hospitalization)
  Sender: FDA-Public Use
  Company Number: GB-PFIZER INC-2020028926

PATIENT
  Age: 46 Year
  Sex: Male
  Weight: 78.92 kg

DRUGS (4)
  1. XANAX [Concomitant]
     Active Substance: ALPRAZOLAM
     Dosage: UNK
  2. DIAZEPAM. [Concomitant]
     Active Substance: DIAZEPAM
     Dosage: UNK
  3. SERTRALINE HCL [Suspect]
     Active Substance: SERTRALINE HYDROCHLORIDE
     Indication: DEPRESSION
     Dosage: 150 MG, DAILY 50 MG IN MORNING AND 100MG AT NIGHT
     Route: 048
     Dates: start: 20190901, end: 20191008
  4. COCODAMOL [Concomitant]
     Active Substance: ACETAMINOPHEN\CODEINE PHOSPHATE
     Dosage: UNK

REACTIONS (6)
  - Slow response to stimuli [Unknown]
  - Withdrawal syndrome [Unknown]
  - Delusion [Recovered/Resolved with Sequelae]
  - Seizure [Recovered/Resolved with Sequelae]
  - Memory impairment [Unknown]
  - Foaming at mouth [Recovered/Resolved with Sequelae]

NARRATIVE: CASE EVENT DATE: 20191008
